FAERS Safety Report 6463214-5 (Version None)
Quarter: 2009Q4

REPORT INFORMATION
  Report Type: 
  Country: None (occurrence: None)
  Receive Date: 20091123
  Receipt Date: 20091110
  Transmission Date: 20100525
  Serious: Yes (Hospitalization)
  Sender: FDA-Public Use
  Company Number: 2009SP035365

PATIENT
  Age: 48 Year
  Sex: Female

DRUGS (20)
  1. MIRTAZAPINE [Suspect]
     Indication: DEPRESSION
     Dosage: 45 MG; PO; 30 MG; PO; 15 MG; PO
     Route: 048
     Dates: start: 20090601, end: 20090818
  2. MIRTAZAPINE [Suspect]
     Indication: DEPRESSION
     Dosage: 45 MG; PO; 30 MG; PO; 15 MG; PO
     Route: 048
     Dates: start: 20090819, end: 20091002
  3. MIRTAZAPINE [Suspect]
     Indication: DEPRESSION
     Dosage: 45 MG; PO; 30 MG; PO; 15 MG; PO
     Route: 048
     Dates: start: 20091003
  4. VENLAFAXINE HCL [Suspect]
     Indication: DRUG USE FOR UNKNOWN INDICATION
     Dosage: 150 MG; PO;  300 MG; PO;  262.5 MG; PO;  225 MG; PO
     Route: 048
     Dates: start: 20090601, end: 20090722
  5. VENLAFAXINE HCL [Suspect]
     Indication: DRUG USE FOR UNKNOWN INDICATION
     Dosage: 150 MG; PO;  300 MG; PO;  262.5 MG; PO;  225 MG; PO
     Route: 048
     Dates: start: 20090723, end: 20090923
  6. VENLAFAXINE HCL [Suspect]
     Indication: DRUG USE FOR UNKNOWN INDICATION
     Dosage: 150 MG; PO;  300 MG; PO;  262.5 MG; PO;  225 MG; PO
     Route: 048
     Dates: start: 20090924, end: 20090926
  7. VENLAFAXINE HCL [Suspect]
     Indication: DRUG USE FOR UNKNOWN INDICATION
     Dosage: 150 MG; PO;  300 MG; PO;  262.5 MG; PO;  225 MG; PO
     Route: 048
     Dates: start: 20090927, end: 20090928
  8. VENLAFAXINE HCL [Suspect]
     Indication: DRUG USE FOR UNKNOWN INDICATION
     Dosage: 150 MG; PO;  300 MG; PO;  262.5 MG; PO;  225 MG; PO
     Route: 048
     Dates: start: 20090929, end: 20091003
  9. SEROQUEL [Suspect]
     Indication: DRUG USE FOR UNKNOWN INDICATION
     Dosage: 200 MG; PO;  300 MG; PO;  375 MG; PO;  475 MG; PO;  400 MG;  300 MG
     Route: 048
     Dates: start: 20090704, end: 20090712
  10. SEROQUEL [Suspect]
     Indication: DRUG USE FOR UNKNOWN INDICATION
     Dosage: 200 MG; PO;  300 MG; PO;  375 MG; PO;  475 MG; PO;  400 MG;  300 MG
     Route: 048
     Dates: start: 20090713, end: 20090729
  11. SEROQUEL [Suspect]
     Indication: DRUG USE FOR UNKNOWN INDICATION
     Dosage: 200 MG; PO;  300 MG; PO;  375 MG; PO;  475 MG; PO;  400 MG;  300 MG
     Route: 048
     Dates: start: 20090731, end: 20090803
  12. SEROQUEL [Suspect]
     Indication: DRUG USE FOR UNKNOWN INDICATION
     Dosage: 200 MG; PO;  300 MG; PO;  375 MG; PO;  475 MG; PO;  400 MG;  300 MG
     Route: 048
     Dates: start: 20090804, end: 20090811
  13. SEROQUEL [Suspect]
     Indication: DRUG USE FOR UNKNOWN INDICATION
     Dosage: 200 MG; PO;  300 MG; PO;  375 MG; PO;  475 MG; PO;  400 MG;  300 MG
     Route: 048
     Dates: start: 20090812, end: 20090827
  14. SEROQUEL [Suspect]
     Indication: DRUG USE FOR UNKNOWN INDICATION
     Dosage: 200 MG; PO;  300 MG; PO;  375 MG; PO;  475 MG; PO;  400 MG;  300 MG
     Route: 048
     Dates: start: 20090828, end: 20090915
  15. SEROQUEL [Suspect]
     Indication: DRUG USE FOR UNKNOWN INDICATION
     Dosage: 200 MG; PO;  300 MG; PO;  375 MG; PO;  475 MG; PO;  400 MG;  300 MG
     Route: 048
     Dates: start: 20090916
  16. DIAZEPAM [Suspect]
     Indication: DRUG USE FOR UNKNOWN INDICATION
     Dosage: 30 MG; PO
     Route: 048
     Dates: start: 20090811, end: 20090824
  17. SEROQUEL [Suspect]
     Indication: DRUG USE FOR UNKNOWN INDICATION
     Dosage: 75 MG; PO;  150 MG; PO
     Route: 048
     Dates: start: 20090804, end: 20090811
  18. SEROQUEL [Suspect]
     Indication: DRUG USE FOR UNKNOWN INDICATION
     Dosage: 75 MG; PO;  150 MG; PO
     Route: 048
     Dates: start: 20090812, end: 20090827
  19. BISOHEXAL (BISOPROLOL) [Concomitant]
  20. PANTOZOL [Concomitant]

REACTIONS (4)
  - CONDITION AGGRAVATED [None]
  - DYSURIA [None]
  - PYELONEPHRITIS [None]
  - URINARY RETENTION [None]
